FAERS Safety Report 10312866 (Version 1)
Quarter: 2014Q3

REPORT INFORMATION
  Report Type: Spontaneous
  Country: US (occurrence: None)
  Receive Date: 20140717
  Receipt Date: 20140717
  Transmission Date: 20150326
  Serious: Yes (Other)
  Sender: FDA-Public Use
  Company Number: None

PATIENT
  Age: 52 Year
  Sex: Female
  Weight: 99.79 kg

DRUGS (1)
  1. LEVAQUIN [Suspect]
     Active Substance: LEVOFLOXACIN
     Indication: SINUSITIS
     Dosage: 1  ONCE DAILY TAKEN BY MOUTH
     Route: 048
     Dates: start: 20140528, end: 20140606

REACTIONS (7)
  - Anxiety [None]
  - Metamorphopsia [None]
  - Memory impairment [None]
  - Hostility [None]
  - Confusional state [None]
  - Loss of employment [None]
  - Depression [None]

NARRATIVE: CASE EVENT DATE: 20140602
